FAERS Safety Report 9056071 (Version 1)
Quarter: 2013Q1

REPORT INFORMATION
  Report Type: Report from Study
  Country: JP (occurrence: JP)
  Receive Date: 20130205
  Receipt Date: 20130205
  Transmission Date: 20140127
  Serious: Yes (Hospitalization)
  Sender: FDA-Public Use
  Company Number: JP-AMGEN-JPNCT2013007850

PATIENT
  Age: 80 Year
  Sex: Female
  Weight: 58 kg

DRUGS (31)
  1. DARBEPOETIN ALFA [Suspect]
     Indication: NEPHROGENIC ANAEMIA
     Dosage: 30 MUG, Q2WK
     Route: 058
     Dates: start: 20110517, end: 20110628
  2. DARBEPOETIN ALFA [Suspect]
     Dosage: 60 MUG, Q4WK
     Route: 058
     Dates: start: 20110712, end: 20110906
  3. DARBEPOETIN ALFA [Suspect]
     Dosage: 60 MUG, Q2WK
     Route: 058
     Dates: start: 20110914
  4. DARBEPOETIN ALFA [Suspect]
     Dosage: 60 MUG, Q2WK
     Route: 058
     Dates: start: 20111111
  5. METHYCOBAL [Concomitant]
     Dosage: UNK
     Route: 048
  6. JUVELA N [Concomitant]
     Dosage: UNK
     Route: 048
  7. HERBESSER [Concomitant]
     Dosage: UNK
     Route: 048
  8. NATRIX [Concomitant]
     Dosage: UNK
     Route: 048
  9. NU-LOTAN [Concomitant]
     Dosage: UNK
     Route: 048
  10. ULCERLMIN [Concomitant]
     Dosage: UNK
     Route: 048
  11. LIPITOR [Concomitant]
     Dosage: UNK
     Route: 048
  12. ZETIA [Concomitant]
     Dosage: UNK
     Route: 048
  13. TAKEPRON [Concomitant]
     Dosage: UNK
     Route: 048
  14. KINEDAK [Concomitant]
     Dosage: UNK
     Route: 048
  15. PERSANTIN-L [Concomitant]
     Dosage: UNK
     Route: 048
  16. NIFEDIPINE [Concomitant]
     Dosage: UNK
     Route: 048
  17. ARTIST [Concomitant]
     Dosage: UNK
     Route: 048
  18. NOVORAPID [Concomitant]
     Indication: NEPHROGENIC ANAEMIA
     Dosage: UNK
     Route: 058
  19. LUMIGAN [Concomitant]
     Dosage: UNK
     Route: 031
  20. BRONUCK [Concomitant]
     Dosage: UNK
     Route: 031
  21. MIKELAN LA [Concomitant]
     Dosage: UNK
     Route: 031
  22. AZOPT [Concomitant]
     Dosage: UNK
     Route: 031
  23. PREMINENT [Concomitant]
     Dosage: UNK
     Route: 048
  24. CALBLOCK [Concomitant]
     Dosage: UNK
     Route: 048
  25. CAPTORIL [Concomitant]
     Dosage: UNK
     Route: 048
  26. MAGMITT [Concomitant]
     Indication: CONSTIPATION
     Dosage: UNK
     Route: 048
  27. DECADRON [Concomitant]
     Dosage: UNK
     Route: 048
  28. ZYLORIC [Concomitant]
     Dosage: UNK
     Route: 048
  29. CARDENALIN [Concomitant]
     Dosage: UNK
     Route: 048
  30. ALDACTONE A [Concomitant]
     Dosage: UNK
     Route: 048
  31. FLUITRAN [Concomitant]
     Dosage: UNK
     Route: 048

REACTIONS (4)
  - Cardiac failure [Recovering/Resolving]
  - Cerebellar infarction [Recovering/Resolving]
  - Renovascular hypertension [Recovered/Resolved]
  - Pituitary-dependent Cushing^s syndrome [Recovered/Resolved]
